FAERS Safety Report 19503201 (Version 1)
Quarter: 2021Q3

REPORT INFORMATION
  Report Type: Report from Study
  Country: None (occurrence: CA)
  Receive Date: 20210708
  Receipt Date: 20210708
  Transmission Date: 20211014
  Serious: Yes (Other)
  Sender: FDA-Public Use
  Company Number: CA-ABBVIE-20K-028-3550680-00

PATIENT
  Sex: Female

DRUGS (2)
  1. HUMIRA [Suspect]
     Active Substance: ADALIMUMAB
     Route: 058
     Dates: start: 2020
  2. HUMIRA [Suspect]
     Active Substance: ADALIMUMAB
     Indication: CROHN^S DISEASE
     Route: 058
     Dates: end: 2020

REACTIONS (10)
  - Arterial occlusive disease [Unknown]
  - Choking [Recovered/Resolved]
  - Myocardial infarction [Unknown]
  - Crohn^s disease [Not Recovered/Not Resolved]
  - Abdominal pain [Recovered/Resolved]
  - Emotional distress [Recovering/Resolving]
  - Diarrhoea [Recovered/Resolved]
  - Impaired quality of life [Not Recovered/Not Resolved]
  - Anxiety [Not Recovered/Not Resolved]
  - Depression [Not Recovered/Not Resolved]

NARRATIVE: CASE EVENT DATE: 2020
